FAERS Safety Report 17698246 (Version 1)
Quarter: 2020Q2

REPORT INFORMATION
  Report Type: Spontaneous
  Country: US (occurrence: US)
  Receive Date: 20200423
  Receipt Date: 20200423
  Transmission Date: 20200714
  Serious: No
  Sender: FDA-Public Use
  Company Number: US-PFIZER INC-2020158720

PATIENT
  Age: 72 Year
  Sex: Female
  Weight: 74.84 kg

DRUGS (1)
  1. LYRICA [Suspect]
     Active Substance: PREGABALIN
     Indication: BREAST PAIN
     Dosage: 50 MG, 2X/DAY
     Route: 048
     Dates: start: 202003

REACTIONS (8)
  - Swelling [Unknown]
  - Product use in unapproved indication [Unknown]
  - Psychiatric symptom [Unknown]
  - Movement disorder [Unknown]
  - Back disorder [Unknown]
  - Skin laceration [Unknown]
  - Off label use [Unknown]
  - Pain [Unknown]

NARRATIVE: CASE EVENT DATE: 20200413
